FAERS Safety Report 11267011 (Version 1)
Quarter: 2015Q3

REPORT INFORMATION
  Report Type: Spontaneous
  Country: US (occurrence: US)
  Receive Date: 20150713
  Receipt Date: 20150713
  Transmission Date: 20151125
  Serious: No
  Sender: FDA-Public Use
  Company Number: US-BANPHARM-20153787

PATIENT
  Age: 71 Year
  Sex: Female

DRUGS (4)
  1. AMANTADINE HYDROCHLORIDE CAPSULES 100 MG [Suspect]
     Active Substance: AMANTADINE HYDROCHLORIDE
     Indication: PARKINSON^S DISEASE
     Dosage: DF 100MG, BID,
     Route: 048
     Dates: start: 201501
  2. NUCYNTA ER [Concomitant]
     Active Substance: TAPENTADOL HYDROCHLORIDE
     Dosage: DF 100 MG,
  3. LOSARTAN. [Concomitant]
     Active Substance: LOSARTAN
     Dosage: DF 25 MG,
  4. ONDANSETRON [Concomitant]
     Active Substance: ONDANSETRON
     Dosage: DF 4 MG,

REACTIONS (1)
  - Drug ineffective [Not Recovered/Not Resolved]

NARRATIVE: CASE EVENT DATE: 201503
